FAERS Safety Report 16684933 (Version 6)
Quarter: 2019Q3

REPORT INFORMATION
  Report Type: Report from Study
  Country: ES (occurrence: ES)
  Receive Date: 20190808
  Receipt Date: 20190923
  Transmission Date: 20191004
  Serious: Yes (Other)
  Sender: FDA-Public Use
  Company Number: ES-SHIRE-ES201920311

PATIENT

DRUGS (7)
  1. HIBOR [Concomitant]
     Indication: PRODUCT USED FOR UNKNOWN INDICATION
  2. OMEPRAZOLE. [Concomitant]
     Active Substance: OMEPRAZOLE
     Indication: PRODUCT USED FOR UNKNOWN INDICATION
  3. TEDUGLUTIDE [Suspect]
     Active Substance: TEDUGLUTIDE
     Indication: NECROTISING COLITIS
     Dosage: 0.03 MILLILITER, 1X/DAY:QD
     Route: 058
     Dates: start: 20190311
  4. COPPER SULFATE [Concomitant]
     Active Substance: CUPRIC SULFATE ANHYDROUS
     Indication: PRODUCT USED FOR UNKNOWN INDICATION
  5. VITAMIN D [COLECALCIFEROL] [Concomitant]
     Active Substance: CHOLECALCIFEROL
     Indication: PRODUCT USED FOR UNKNOWN INDICATION
  6. URSOCHOL [Concomitant]
     Active Substance: URSODIOL
     Indication: PRODUCT USED FOR UNKNOWN INDICATION
  7. RANITIDINE. [Concomitant]
     Active Substance: RANITIDINE
     Indication: PRODUCT USED FOR UNKNOWN INDICATION

REACTIONS (21)
  - Choking [Recovered/Resolved]
  - Abnormal faeces [Recovered/Resolved]
  - Frequent bowel movements [Not Recovered/Not Resolved]
  - Abdominal pain [Not Recovered/Not Resolved]
  - Fatigue [Recovered/Resolved]
  - Somnolence [Recovered/Resolved]
  - Thirst [Recovered/Resolved]
  - Diarrhoea [Recovered/Resolved]
  - Astrovirus test positive [Recovered/Resolved]
  - Faecal volume increased [Recovered/Resolved]
  - Mucous stools [Recovered/Resolved]
  - Hyperhidrosis [Recovered/Resolved]
  - Urine output increased [Recovered/Resolved]
  - Neutropenia [Unknown]
  - Haemorrhage [Unknown]
  - Middle insomnia [Recovered/Resolved]
  - Weight decreased [Not Recovered/Not Resolved]
  - Abdominal distension [Recovered/Resolved]
  - Cough [Recovered/Resolved]
  - Polyuria [Recovered/Resolved]
  - Abdominal discomfort [Not Recovered/Not Resolved]

NARRATIVE: CASE EVENT DATE: 20190617
